FAERS Safety Report 8825274 (Version 2)
Quarter: 2012Q4

REPORT INFORMATION
  Report Type: 
  Country: US (occurrence: US)
  Receive Date: 20121004
  Receipt Date: 20121012
  Transmission Date: 20130627
  Serious: Yes (Death, Hospitalization, Other)
  Sender: FDA-Public Use
  Company Number: US-ROCHE-1137140

PATIENT
  Age: 34 Year
  Sex: Male

DRUGS (3)
  1. RITUXAN [Suspect]
     Indication: LEUKAEMIA
     Route: 065
     Dates: start: 20080908
  2. RITUXAN [Suspect]
     Indication: ACUTE LEUKAEMIA
  3. RITUXAN [Suspect]
     Indication: OFF LABEL USE

REACTIONS (4)
  - Sepsis [Fatal]
  - Cardiopulmonary failure [Fatal]
  - Hypotension [Unknown]
  - Acute lymphocytic leukaemia recurrent [Unknown]
